FAERS Safety Report 4757986-5 (Version None)
Quarter: 2005Q3

REPORT INFORMATION
  Report Type: 
  Country: None (occurrence: None)
  Receive Date: 20050826
  Receipt Date: 20050318
  Transmission Date: 20060218
  Serious: Yes (Hospitalization)
  Sender: FDA-Public Use
  Company Number: CIP05000647

PATIENT
  Age: 53 Year
  Sex: Male

DRUGS (11)
  1. ASACOL [Suspect]
     Indication: COLITIS ULCERATIVE
     Dosage: 1200-4800 MG, DAILY, ORAL; 1200 MG, 3 TIMES DAILY
     Route: 048
     Dates: start: 19900101
  2. FLAGYL [Concomitant]
  3. LANOXIN [Concomitant]
  4. LASIX [Concomitant]
  5. ATENOLOL [Concomitant]
  6. ALDACTONE [Concomitant]
  7. VASOTEC [Concomitant]
  8. FEOSOL (FERROUS SULFATE) [Concomitant]
  9. METHYLPREDNISOLONE [Concomitant]
  10. AMBIEN [Concomitant]
  11. MYLICON (SIMETICONE) [Concomitant]

REACTIONS (10)
  - ANAL DISCOMFORT [None]
  - COLITIS [None]
  - DIARRHOEA [None]
  - FOREIGN BODY TRAUMA [None]
  - GASTROINTESTINAL DISORDER [None]
  - GASTROINTESTINAL PAIN [None]
  - INFLUENZA [None]
  - PYREXIA [None]
  - STOOL ANALYSIS ABNORMAL [None]
  - VOMITING [None]
